FAERS Safety Report 10313066 (Version 1)
Quarter: 2014Q3

REPORT INFORMATION
  Report Type: Spontaneous
  Country: US (occurrence: None)
  Receive Date: 20140717
  Receipt Date: 20140717
  Transmission Date: 20150326
  Serious: Yes (Life-Threatening, Hospitalization, Other)
  Sender: FDA-Public Use
  Company Number: None

PATIENT
  Age: 62 Year
  Sex: Male
  Weight: 94.8 kg

DRUGS (2)
  1. PLAVIX [Suspect]
     Active Substance: CLOPIDOGREL BISULFATE
     Indication: PROPHYLAXIS
     Dosage: PLAVIX  ONCE DAILY  TAKEN BY MOUTH
     Route: 048
     Dates: start: 20131225, end: 20140203
  2. PLAVIX [Suspect]
     Active Substance: CLOPIDOGREL BISULFATE
     Indication: THROMBOSIS
     Dosage: PLAVIX  ONCE DAILY  TAKEN BY MOUTH
     Route: 048
     Dates: start: 20131225, end: 20140203

REACTIONS (6)
  - Chest pain [None]
  - Peripheral swelling [None]
  - Haematemesis [None]
  - Post procedural haemorrhage [None]
  - Pain in extremity [None]
  - Skin discolouration [None]

NARRATIVE: CASE EVENT DATE: 20140208
